FAERS Safety Report 11923331 (Version 1)
Quarter: 2016Q1

REPORT INFORMATION
  Report Type: Spontaneous
  Country: CA (occurrence: CA)
  Receive Date: 20160118
  Receipt Date: 20160118
  Transmission Date: 20160526
  Serious: Yes (Disabling)
  Sender: FDA-Public Use
  Company Number: CA-ROCHE-1695634

PATIENT
  Age: 71 Year
  Sex: Female

DRUGS (2)
  1. LUCENTIS [Suspect]
     Active Substance: RANIBIZUMAB
     Indication: MACULAR DEGENERATION
     Dosage: DOSE 10MG/ML.?DURATION 335DAYS.
     Route: 031
  2. ADALAT CC [Concomitant]
     Active Substance: NIFEDIPINE

REACTIONS (3)
  - Vision blurred [Not Recovered/Not Resolved]
  - Vitreous injury [Not Recovered/Not Resolved]
  - Eye swelling [Not Recovered/Not Resolved]
